FAERS Safety Report 4672751-5 (Version None)
Quarter: 2005Q2

REPORT INFORMATION
  Report Type: 
  Country: None (occurrence: None)
  Receive Date: 20050523
  Receipt Date: 20050413
  Transmission Date: 20051028
  Serious: Yes (Other)
  Sender: FDA-Public Use
  Company Number: 2005001070

PATIENT
  Age: 31 Year
  Sex: Female

DRUGS (4)
  1. DEPO-PROVERA [Suspect]
     Indication: MENSTRUAL DISCOMFORT
     Dosage: SEE IMAGE
     Dates: start: 20000101, end: 20000101
  2. DEPO-PROVERA [Suspect]
     Indication: MENSTRUAL DISCOMFORT
     Dosage: SEE IMAGE
     Dates: start: 20050413, end: 20050413
  3. CLONAZEPAM [Concomitant]
  4. TOPAMAX [Concomitant]

REACTIONS (7)
  - AMENORRHOEA [None]
  - DYSPAREUNIA [None]
  - OFF LABEL USE [None]
  - PAPILLOMA VIRAL INFECTION [None]
  - SEXUAL TRANSMISSION OF INFECTION [None]
  - UTERINE DISORDER [None]
  - VAGINAL HAEMORRHAGE [None]
